FAERS Safety Report 14800268 (Version 1)
Quarter: 2018Q2

REPORT INFORMATION
  Report Type: Spontaneous
  Country: US (occurrence: US)
  Receive Date: 20180424
  Receipt Date: 20180424
  Transmission Date: 20180711
  Serious: Yes (Other)
  Sender: FDA-Public Use
  Company Number: US-BAYER-2018-078592

PATIENT
  Sex: Male
  Weight: 64 kg

DRUGS (1)
  1. MIRALAX [Suspect]
     Active Substance: POLYETHYLENE GLYCOL 3350
     Indication: GASTROINTESTINAL DISORDER
     Dosage: 17 GRAMS IN 8 OUNCE LIQUID DOSE
     Route: 048
     Dates: start: 20180213

REACTIONS (7)
  - Nausea [Recovered/Resolved]
  - Kidney small [Unknown]
  - Vertigo [Not Recovered/Not Resolved]
  - Product use issue [Unknown]
  - Retching [Recovered/Resolved]
  - Dizziness [Not Recovered/Not Resolved]
  - Renal atrophy [Not Recovered/Not Resolved]

NARRATIVE: CASE EVENT DATE: 201803
